FAERS Safety Report 5154314-0 (Version None)
Quarter: 2006Q4

REPORT INFORMATION
  Report Type: 
  Country: None (occurrence: None)
  Receive Date: 20061114
  Receipt Date: 20061030
  Transmission Date: 20070319
  Serious: Yes (Death, Hospitalization)
  Sender: FDA-Public Use
  Company Number: GXKR2006AU06854

PATIENT
  Age: 37 Year
  Sex: Female

DRUGS (1)
  1. VERAPAMIL [Suspect]
     Dosage: 8000 MG

REACTIONS (4)
  - CARDIAC ARREST [None]
  - NODAL ARRHYTHMIA [None]
  - OVERDOSE [None]
  - SINUS BRADYCARDIA [None]
